FAERS Safety Report 10079717 (Version 1)
Quarter: 2014Q2

REPORT INFORMATION
  Report Type: Spontaneous
  Country: US (occurrence: None)
  Receive Date: 20140414
  Receipt Date: 20140414
  Transmission Date: 20141212
  Serious: Yes (Disabling)
  Sender: FDA-Public Use
  Company Number: None

PATIENT
  Age: 48 Year
  Sex: Female
  Weight: 72.58 kg

DRUGS (1)
  1. CIPROFLOXACIN [Suspect]
     Indication: URINARY TRACT INFECTION
     Route: 048
     Dates: start: 20140411, end: 20140413

REACTIONS (12)
  - Hypoaesthesia [None]
  - Muscle twitching [None]
  - Muscle spasms [None]
  - Muscular weakness [None]
  - Dizziness [None]
  - Dizziness [None]
  - Nervous system disorder [None]
  - Paraesthesia [None]
  - Palpitations [None]
  - Arrhythmia [None]
  - Syncope [None]
  - Pain [None]
